FAERS Safety Report 6400598-8 (Version None)
Quarter: 2009Q4

REPORT INFORMATION
  Report Type: 
  Country: None (occurrence: None)
  Receive Date: 20091014
  Receipt Date: 20090930
  Transmission Date: 20100525
  Serious: Yes (Other)
  Sender: FDA-Public Use
  Company Number: PHHY2009DE42168

PATIENT
  Sex: Female
  Weight: 76 kg

DRUGS (1)
  1. CGS 20267 T30748+ [Suspect]
     Indication: BREAST CANCER
     Dosage: 2.5 MG/DAY
     Route: 048
     Dates: start: 20081006, end: 20081128

REACTIONS (3)
  - ARTHRALGIA [None]
  - MOOD SWINGS [None]
  - PANIC ATTACK [None]
